FAERS Safety Report 24554984 (Version 3)
Quarter: 2025Q2

REPORT INFORMATION
  Report Type: Spontaneous
  Country: FR (occurrence: FR)
  Receive Date: 20241028
  Receipt Date: 20250407
  Transmission Date: 20250716
  Serious: No
  Sender: TOLMAR
  Company Number: FR-RECORDATI-2024007647

PATIENT

DRUGS (2)
  1. ELIGARD [Suspect]
     Active Substance: LEUPROLIDE ACETATE
     Indication: Prostate cancer
     Dates: start: 20241001
  2. ELIGARD [Suspect]
     Active Substance: LEUPROLIDE ACETATE
     Indication: Prostate cancer

REACTIONS (4)
  - Intercepted product preparation error [Unknown]
  - Syringe issue [Unknown]
  - Device occlusion [Unknown]
  - Product physical consistency issue [Unknown]

NARRATIVE: CASE EVENT DATE: 20241001
